FAERS Safety Report 4324601-4 (Version None)
Quarter: 2004Q1

REPORT INFORMATION
  Report Type: 
  Country: None (occurrence: None)
  Receive Date: 20040325
  Receipt Date: 20040325
  Transmission Date: 20041129
  Serious: Yes (Hospitalization)
  Sender: FDA-Public Use
  Company Number: None

PATIENT
  Age: 87 Year
  Sex: Male

DRUGS (1)
  1. DILANTIN [Suspect]
     Indication: EPILEPSY
     Dosage: 100 MG (?) PO
     Route: 048
     Dates: start: 20030101, end: 20040101

REACTIONS (3)
  - DRUG LEVEL ABOVE THERAPEUTIC [None]
  - EPISTAXIS [None]
  - MENTAL STATUS CHANGES [None]
